FAERS Safety Report 8872553 (Version 1)
Quarter: 2012Q4

REPORT INFORMATION
  Report Type: 
  Country: US (occurrence: US)
  Receive Date: 20121026
  Receipt Date: 20121026
  Transmission Date: 20130627
  Serious: No
  Sender: FDA-Public Use
  Company Number: US-AMGEN-USASP2012051281

PATIENT
  Age: 63 Year
  Sex: Female
  Weight: 65.76 kg

DRUGS (8)
  1. ENBREL [Suspect]
     Indication: PRODUCT USED FOR UNKNOWN INDICATION
     Dosage: 50 mg, qwk
     Route: 058
  2. OMEPRAZOLE [Concomitant]
     Dosage: 20 mg, UNK
  3. ATELVIA [Concomitant]
  4. MOBIC [Concomitant]
     Dosage: 7.5 mg, UNK
  5. SULFASALAZINE [Concomitant]
     Dosage: 500 mg, UNK
  6. MULTIVITAMINS, PLAIN [Concomitant]
     Dosage: UNK
  7. CALCIUM + VIT D [Concomitant]
  8. ZIAC [Concomitant]
     Dosage: UNK, 2.5/6.25

REACTIONS (1)
  - Eye infection [Unknown]
